FAERS Safety Report 14668860 (Version 1)
Quarter: 2018Q1

REPORT INFORMATION
  Report Type: Spontaneous
  Country: US (occurrence: US)
  Receive Date: 20180321
  Receipt Date: 20180321
  Transmission Date: 20180509
  Serious: Yes (Death)
  Sender: FDA-Public Use
  Company Number: None

PATIENT
  Sex: Female

DRUGS (22)
  1. LORATADINE. [Concomitant]
     Active Substance: LORATADINE
  2. BACLOFEN. [Concomitant]
     Active Substance: BACLOFEN
  3. CYANOCOBALAMIN. [Concomitant]
     Active Substance: CYANOCOBALAMIN
  4. ATORVASTATIN CALCIUM. [Concomitant]
     Active Substance: ATORVASTATIN CALCIUM
  5. DEMADEX [Concomitant]
     Active Substance: TORSEMIDE
  6. ESTRADIOL. [Concomitant]
     Active Substance: ESTRADIOL
  7. ATENOLOL. [Concomitant]
     Active Substance: ATENOLOL
  8. TRAMADOL HCL [Concomitant]
     Active Substance: TRAMADOL HYDROCHLORIDE
  9. TYLENOL/CODEINE #3 [Concomitant]
  10. BISACODYL. [Concomitant]
     Active Substance: BISACODYL
  11. FENTANYL CITRATE. [Concomitant]
     Active Substance: FENTANYL CITRATE
  12. GABAPENTIN. [Concomitant]
     Active Substance: GABAPENTIN
  13. ACIDOPHILUS/PECTIN [Concomitant]
  14. SINGULARI [Concomitant]
  15. FOILIC ACID [Concomitant]
  16. LORAZEPAM. [Concomitant]
     Active Substance: LORAZEPAM
  17. GLATOPA [Suspect]
     Active Substance: GLATIRAMER ACETATE
     Indication: MULTIPLE SCLEROSIS
     Route: 058
  18. CALCIUM CARBONATE. [Concomitant]
     Active Substance: CALCIUM CARBONATE
  19. DULOXETINE HCL [Concomitant]
     Active Substance: DULOXETINE HYDROCHLORIDE
  20. SENNA [Concomitant]
     Active Substance: SENNA LEAF\SENNOSIDES\SENNOSIDES A AND B
  21. THEOPYLLINE/D5W [Concomitant]
  22. LUNESTA [Concomitant]
     Active Substance: ESZOPICLONE

REACTIONS (1)
  - Death [None]
